FAERS Safety Report 9104496 (Version 1)
Quarter: 2013Q1

REPORT INFORMATION
  Report Type: Spontaneous
  Country: US (occurrence: US)
  Receive Date: 20130220
  Receipt Date: 20130220
  Transmission Date: 20140127
  Serious: Yes (Death, Other)
  Sender: FDA-Public Use
  Company Number: US-JNJFOC-20120808485

PATIENT
  Age: 81 Year
  Sex: Male
  Weight: 82.4 kg

DRUGS (9)
  1. XARELTO [Suspect]
     Indication: CEREBROVASCULAR ACCIDENT PROPHYLAXIS
     Route: 048
     Dates: start: 20120611, end: 20120611
  2. XARELTO [Suspect]
     Indication: ATRIAL FIBRILLATION
     Route: 048
     Dates: start: 20120611, end: 20120611
  3. SINEMET [Concomitant]
     Indication: PARKINSON^S DISEASE
     Dosage: DOSE: 25/100 MG
     Route: 048
  4. DIGOXIN [Concomitant]
     Indication: ATRIAL FIBRILLATION
     Route: 048
  5. FUROSEMIDE [Concomitant]
     Indication: HYPERTENSION
     Route: 048
  6. METOPROLOL [Concomitant]
     Indication: HYPERTENSION
     Route: 048
  7. SITAGLIPTIN [Concomitant]
     Indication: DIABETES MELLITUS
  8. ZOSYN [Concomitant]
     Indication: INFECTION
     Route: 042
     Dates: start: 20120611, end: 20120614
  9. SIMVASTATIN [Concomitant]
     Indication: BLOOD CHOLESTEROL
     Route: 048

REACTIONS (2)
  - Death [Fatal]
  - International normalised ratio increased [Recovered/Resolved with Sequelae]
